FAERS Safety Report 9227250 (Version 2)
Quarter: 2013Q2

REPORT INFORMATION
  Report Type: Spontaneous
  Country: EG (occurrence: EG)
  Receive Date: 20130412
  Receipt Date: 20130424
  Transmission Date: 20140414
  Serious: Yes (Death, Life-Threatening, Hospitalization)
  Sender: FDA-Public Use
  Company Number: PHHY2013EG035409

PATIENT
  Sex: Male
  Weight: 80 kg

DRUGS (4)
  1. INDACATEROL [Suspect]
     Dosage: 150 UG, UNK
     Dates: start: 20130402, end: 20130402
  2. TAVANIC [Concomitant]
     Dosage: 500 / 24 HOURS
     Route: 042
  3. TAZOCIN [Concomitant]
     Dosage: 4.5 G / 6 HOURS
     Route: 042
  4. BETA BLOCKING AGENTS [Concomitant]

REACTIONS (4)
  - Death [Fatal]
  - Atrial fibrillation [Recovered/Resolved with Sequelae]
  - Dyspnoea [Unknown]
  - Chest discomfort [Unknown]
